FAERS Safety Report 25239660 (Version 1)
Quarter: 2025Q2

REPORT INFORMATION
  Report Type: Spontaneous
  Country: TW (occurrence: TW)
  Receive Date: 20250425
  Receipt Date: 20250425
  Transmission Date: 20250717
  Serious: Yes (Other)
  Sender: BAUSCH AND LOMB
  Company Number: TW-BAUSCH-BL-2025-005289

PATIENT
  Age: 38 Year
  Sex: Female

DRUGS (1)
  1. BRODALUMAB [Suspect]
     Active Substance: BRODALUMAB
     Indication: Psoriatic arthropathy
     Dosage: UNK, ONCE EVERY 2 WEEKS
     Route: 058
     Dates: start: 20230122

REACTIONS (1)
  - Castleman^s disease [Recovering/Resolving]

NARRATIVE: CASE EVENT DATE: 20250415
